FAERS Safety Report 8205383-2 (Version None)
Quarter: 2012Q1

REPORT INFORMATION
  Report Type: 
  Country: None (occurrence: None)
  Receive Date: 20120313
  Receipt Date: 20120227
  Transmission Date: 20120608
  Serious: Yes (Hospitalization)
  Sender: FDA-Public Use
  Company Number: GB-WATSON-2012-03848

PATIENT
  Age: 43 Year
  Sex: Female

DRUGS (2)
  1. METHADON HCL TAB [Suspect]
     Indication: OVERDOSE
     Dosage: 180 MG, SINGLE
  2. ALPRAZOLAM [Suspect]
     Indication: OVERDOSE
     Dosage: 15 MG, SINGLE

REACTIONS (5)
  - LEUKOENCEPHALOPATHY [None]
  - OVERDOSE [None]
  - PNEUMONIA ASPIRATION [None]
  - HEPATIC FAILURE [None]
  - RENAL TUBULAR NECROSIS [None]
